FAERS Safety Report 13011016 (Version 2)
Quarter: 2016Q4

REPORT INFORMATION
  Report Type: Report from Study
  Country: US (occurrence: US)
  Receive Date: 20161208
  Receipt Date: 20161217
  Transmission Date: 20170207
  Serious: Yes (Life-Threatening, Other)
  Sender: FDA-Public Use
  Company Number: US-ASTRAZENECA-2016SF28034

PATIENT
  Age: 43 Year
  Sex: Male
  Weight: 85.3 kg

DRUGS (9)
  1. LISINOPRIL. [Suspect]
     Active Substance: LISINOPRIL
     Route: 048
  2. ASPIRIN. [Concomitant]
     Active Substance: ASPIRIN
     Route: 048
  3. CARVEDILOL. [Concomitant]
     Active Substance: CARVEDILOL
     Route: 048
  4. BRILINTA [Suspect]
     Active Substance: TICAGRELOR
     Route: 048
  5. SPIRONOLACTONE. [Concomitant]
     Active Substance: SPIRONOLACTONE
     Route: 048
  6. FUROSEMIDE. [Concomitant]
     Active Substance: FUROSEMIDE
     Route: 048
  7. PLAVIX [Concomitant]
     Active Substance: CLOPIDOGREL BISULFATE
  8. ATORVASTATIN CALCIUM. [Concomitant]
     Active Substance: ATORVASTATIN CALCIUM
     Indication: HYPERLIPIDAEMIA
     Route: 048
  9. METFORMIN HCL [Concomitant]
     Active Substance: METFORMIN HYDROCHLORIDE
     Route: 048

REACTIONS (9)
  - Diabetes mellitus [Unknown]
  - Hyperlipidaemia [Unknown]
  - Cardiac arrest [Unknown]
  - Hypertension [Unknown]
  - Arteriosclerosis coronary artery [Unknown]
  - Drug dose omission [Unknown]
  - Fatigue [Unknown]
  - Left ventricular dysfunction [Unknown]
  - Myocardial infarction [Unknown]
